FAERS Safety Report 9403660 (Version 1)
Quarter: 2013Q3

REPORT INFORMATION
  Report Type: Report from Study
  Country: BR (occurrence: BR)
  Receive Date: 20130717
  Receipt Date: 20130717
  Transmission Date: 20140515
  Serious: Yes (Hospitalization)
  Sender: FDA-Public Use
  Company Number: BR-ROCHE-1249525

PATIENT
  Sex: Male
  Weight: 37 kg

DRUGS (8)
  1. MABTHERA [Suspect]
     Indication: SYSTEMIC LUPUS ERYTHEMATOSUS
     Dosage: MOST RECENT INFUSION WAS PERFORMED ON 27/DEC/2012.
     Route: 065
     Dates: start: 20110503
  2. CITONEURIN [Concomitant]
  3. ARADOIS [Concomitant]
  4. OMEPRAZOLE [Concomitant]
  5. ABLOK [Concomitant]
  6. CORTICORTEN [Concomitant]
  7. SIMVASTATIN [Concomitant]
  8. FUROSEMIDE [Concomitant]

REACTIONS (1)
  - Renal failure [Not Recovered/Not Resolved]
